FAERS Safety Report 11448538 (Version 2)
Quarter: 2015Q3

REPORT INFORMATION
  Report Type: Spontaneous
  Country: CN (occurrence: CN)
  Receive Date: 20150902
  Receipt Date: 20150910
  Transmission Date: 20151125
  Serious: Yes (Other)
  Sender: FDA-Public Use
  Company Number: CN-BAYER-2015-411617

PATIENT
  Sex: Male

DRUGS (4)
  1. SIMVASTATIN. [Concomitant]
     Active Substance: SIMVASTATIN
     Indication: LIPIDS INCREASED
     Dosage: DAILY DOSE 1 DF
  2. LIPITOR [Concomitant]
     Active Substance: ATORVASTATIN CALCIUM
     Indication: LIPIDS INCREASED
     Dosage: 10 MG, QD
  3. GLUCOBAY [Suspect]
     Active Substance: ACARBOSE
     Indication: GLUCOSE TOLERANCE IMPAIRED
     Dosage: 50 MG, BEFORE EACH MEAL
     Dates: start: 1999
  4. LIPITOR [Concomitant]
     Active Substance: ATORVASTATIN CALCIUM
     Indication: LIPIDS INCREASED
     Dosage: 20 MG, QD

REACTIONS (3)
  - Blood glucose increased [Not Recovered/Not Resolved]
  - Type 2 diabetes mellitus [None]
  - Lipids increased [None]

NARRATIVE: CASE EVENT DATE: 201508
